FAERS Safety Report 10425722 (Version 1)
Quarter: 2014Q3

REPORT INFORMATION
  Report Type: Spontaneous
  Country: DE (occurrence: DE)
  Receive Date: 20140903
  Receipt Date: 20140903
  Transmission Date: 20150326
  Serious: Yes (Disabling, Other)
  Sender: FDA-Public Use
  Company Number: DE-RANBAXY-2014RR-84804

PATIENT
  Age: 80 Year
  Sex: Male

DRUGS (1)
  1. ACICLO BASICS 800 MG [Suspect]
     Active Substance: ACYCLOVIR
     Indication: HERPES ZOSTER
     Dosage: 1-0-1
     Route: 065
     Dates: end: 20140530

REACTIONS (5)
  - Pollakiuria [Recovering/Resolving]
  - Proctalgia [Recovered/Resolved]
  - Dysgeusia [Not Recovered/Not Resolved]
  - Urethral pain [Recovered/Resolved]
  - Micturition urgency [Recovering/Resolving]
